FAERS Safety Report 5064093-3 (Version None)
Quarter: 2006Q3

REPORT INFORMATION
  Report Type: 
  Country: None (occurrence: None)
  Receive Date: 20060706
  Receipt Date: 20060506
  Transmission Date: 20061208
  Serious: No
  Sender: FDA-Public Use
  Company Number: 200613033BWH

PATIENT
  Age: 45 Year
  Sex: Male

DRUGS (7)
  1. LEVITRA [Suspect]
     Indication: ERECTILE DYSFUNCTION
     Dosage: 20 MG, ONCE, ORAL
     Route: 048
     Dates: start: 20060101
  2. LEVITRA [Suspect]
     Indication: ERECTILE DYSFUNCTION
     Dosage: 20 MG, ONCE, ORAL
     Route: 048
     Dates: start: 20060101
  3. LEVITRA [Suspect]
     Indication: ERECTILE DYSFUNCTION
     Dosage: 20 MG, ONCE, ORAL
     Route: 048
     Dates: start: 20060506
  4. SKELAXIN [Concomitant]
  5. GABAPENTIN [Concomitant]
  6. KLONOPIN [Concomitant]
  7. ANTI-INFLAMMATORIES [Concomitant]

REACTIONS (1)
  - ERECTILE DYSFUNCTION [None]
